FAERS Safety Report 10185342 (Version 1)
Quarter: 2014Q2

REPORT INFORMATION
  Report Type: Spontaneous
  Country: US (occurrence: US)
  Receive Date: 20140521
  Receipt Date: 20140521
  Transmission Date: 20141212
  Serious: Yes (Hospitalization, Other)
  Sender: FDA-Public Use
  Company Number: US-ACTAVIS-2014-09953

PATIENT
  Age: 49 Year
  Sex: Female

DRUGS (9)
  1. CALCIUM CARBONATE (UNKNOWN) [Suspect]
     Indication: HYPOCALCAEMIA
     Dosage: UNKNOWN - TID
     Route: 048
  2. CALCITRIOL (UNKNOWN) [Suspect]
     Indication: HYPOCALCAEMIA
     Dosage: 1 ?G, DAILY
     Route: 048
  3. CYCLOSPORINE (WATSON LABORATORIES) [Suspect]
     Indication: IMMUNOSUPPRESSANT DRUG THERAPY
     Dosage: 75 MG, BID
     Route: 048
  4. CYCLOSPORINE (WATSON LABORATORIES) [Suspect]
     Indication: RENAL TRANSPLANT
  5. POTASSIUM PHOSPHATE [Suspect]
     Indication: HYPOPHOSPHATAEMIA
     Dosage: UNKNOWN - TID
     Route: 048
  6. MYCOPHENOLATE MOFETIL [Concomitant]
     Indication: IMMUNOSUPPRESSANT DRUG THERAPY
     Dosage: 1 G, BID
     Route: 065
  7. MYCOPHENOLATE MOFETIL [Concomitant]
     Indication: RENAL TRANSPLANT
  8. PREDNISONE [Concomitant]
     Indication: IMMUNOSUPPRESSANT DRUG THERAPY
     Dosage: 2.5 MG, DAILY
     Route: 065
  9. PREDNISONE [Concomitant]
     Indication: RENAL TRANSPLANT

REACTIONS (2)
  - Nephrocalcinosis [Unknown]
  - Hypophosphataemia [Recovered/Resolved]
